FAERS Safety Report 9893977 (Version 1)
Quarter: 2014Q1

REPORT INFORMATION
  Report Type: Spontaneous
  Country: US (occurrence: US)
  Receive Date: 20140213
  Receipt Date: 20140213
  Transmission Date: 20141002
  Serious: Yes (Other)
  Sender: FDA-Public Use
  Company Number: US-PFIZER INC-2014039203

PATIENT
  Sex: Female

DRUGS (3)
  1. XELJANZ [Suspect]
     Dosage: UNK
  2. METHOTREXATE SODIUM [Suspect]
     Dosage: UNK
  3. PREDNISONE [Suspect]
     Dosage: UNK

REACTIONS (1)
  - Herpes zoster [Unknown]
